FAERS Safety Report 18864950 (Version 1)
Quarter: 2021Q1

REPORT INFORMATION
  Report Type: Spontaneous
  Country: ES (occurrence: ES)
  Receive Date: 20210208
  Receipt Date: 20210208
  Transmission Date: 20210420
  Serious: Yes (Other)
  Sender: FDA-Public Use
  Company Number: ES-PFIZER INC-2021095649

PATIENT
  Age: 79 Year
  Sex: Male

DRUGS (10)
  1. TORASEMIDA CINFA [Concomitant]
     Active Substance: TORSEMIDE
     Indication: CARDIAC FAILURE
     Dosage: 5 MG 24 H;
     Route: 048
     Dates: start: 20090715
  2. OPTOVITE B12 [Concomitant]
     Active Substance: CYANOCOBALAMIN
     Indication: VITAMIN B COMPLEX DEFICIENCY
     Dosage: 1 MG EVERY 24 H
     Route: 030
     Dates: start: 20200725
  3. SERTRALINE [Suspect]
     Active Substance: SERTRALINE HYDROCHLORIDE
     Indication: DEPRESSION
     Dosage: 1 DF EVERY 24 H
     Route: 048
     Dates: start: 20201201, end: 20210113
  4. LORMETAZEPAM NORMON [Concomitant]
     Active Substance: LORMETAZEPAM
     Indication: RECTAL CANCER
     Dosage: 2 MG, EVERY 24 H
     Route: 048
     Dates: start: 20201104
  5. AMLODIPINO STADA [Concomitant]
     Indication: HYPERTENSION
     Dosage: 10 MG EVERY 24 H
     Route: 048
     Dates: start: 20201021
  6. NOVORAPID [Concomitant]
     Active Substance: INSULIN ASPART
     Indication: TYPE 1 DIABETES MELLITUS
     Dosage: 15 IU EVERY 24 H
     Route: 058
     Dates: start: 20200725
  7. ATORVASTATINA STADA [Concomitant]
     Indication: TYPE IIA HYPERLIPIDAEMIA
     Dosage: 20 MG EVERY 24 H
     Route: 048
     Dates: start: 20161103
  8. IRBESARTAN ALTER [Concomitant]
     Indication: HYPERTENSION
     Dosage: 300 MG EVERY 24 H
     Route: 048
     Dates: start: 20120419
  9. TRESIBA [Concomitant]
     Active Substance: INSULIN DEGLUDEC
     Indication: TYPE 1 DIABETES MELLITUS
     Dosage: 40 IU EVERY 24 H
     Route: 058
     Dates: start: 20161104
  10. FERROUS SULFATE. [Concomitant]
     Active Substance: FERROUS SULFATE
     Indication: PERNICIOUS ANAEMIA
     Dosage: 105 MG EVERY 24 H
     Route: 048
     Dates: start: 20201126

REACTIONS (2)
  - Dizziness [Recovering/Resolving]
  - Balance disorder [Recovering/Resolving]

NARRATIVE: CASE EVENT DATE: 20201214
